FAERS Safety Report 18286246 (Version 1)
Quarter: 2020Q3

REPORT INFORMATION
  Report Type: Spontaneous
  Country: US (occurrence: US)
  Receive Date: 20200920
  Receipt Date: 20200920
  Transmission Date: 20201103
  Serious: No
  Sender: FDA-Public Use
  Company Number: US-SA-2020SA173331

PATIENT

DRUGS (1)
  1. LANTUS SOLOSTAR [Suspect]
     Active Substance: INSULIN GLARGINE
     Indication: TYPE 2 DIABETES MELLITUS
     Dosage: 13 IU, QD
     Route: 065

REACTIONS (4)
  - Hypoacusis [Unknown]
  - Injection site haemorrhage [Unknown]
  - Injection site mass [Unknown]
  - Device operational issue [Unknown]
